FAERS Safety Report 20361533 (Version 1)
Quarter: 2022Q1

REPORT INFORMATION
  Report Type: Spontaneous
  Country: CN (occurrence: CN)
  Receive Date: 20220121
  Receipt Date: 20220121
  Transmission Date: 20220423
  Serious: Yes (Other)
  Sender: FDA-Public Use
  Company Number: CN-009507513-2201CHN003614

PATIENT
  Age: 85 Year
  Sex: Female
  Weight: 40 kg

DRUGS (1)
  1. CILASTATIN SODIUM\IMIPENEM [Suspect]
     Active Substance: CILASTATIN SODIUM\IMIPENEM
     Indication: Anti-infective therapy
     Dosage: 500 MG, THREE TIMES A DAY
     Route: 041
     Dates: start: 20220103, end: 20220103

REACTIONS (4)
  - Seizure [Recovered/Resolved]
  - Gaze palsy [Unknown]
  - Nuchal rigidity [Unknown]
  - Hypertonia [Unknown]

NARRATIVE: CASE EVENT DATE: 20220103
